FAERS Safety Report 16949779 (Version 15)
Quarter: 2022Q3

REPORT INFORMATION
  Report Type: Report from Study
  Country: US (occurrence: US)
  Receive Date: 20191023
  Receipt Date: 20220824
  Transmission Date: 20221027
  Serious: Yes (Hospitalization, Other)
  Sender: FDA-Public Use
  Company Number: US-SHIRE-US201935634

PATIENT
  Age: 77 Year
  Sex: Female
  Weight: 99 kg

DRUGS (32)
  1. HUMAN IMMUNOGLOBULIN G [Suspect]
     Active Substance: HUMAN IMMUNOGLOBULIN G
     Indication: Immunodeficiency common variable
     Dosage: 12 GRAM, 1/WEEK
     Route: 058
     Dates: start: 20190731
  2. HUMAN IMMUNOGLOBULIN G [Suspect]
     Active Substance: HUMAN IMMUNOGLOBULIN G
     Indication: Primary immunodeficiency syndrome
     Dosage: 12 GRAM, 1/WEEK
     Route: 058
     Dates: start: 20190801
  3. HUMAN IMMUNOGLOBULIN G [Suspect]
     Active Substance: HUMAN IMMUNOGLOBULIN G
     Indication: Alpha-1 antitrypsin deficiency
  4. HUMAN IMMUNOGLOBULIN G [Suspect]
     Active Substance: HUMAN IMMUNOGLOBULIN G
     Indication: Hypogammaglobulinaemia
  5. ACETAMINOPHEN [Concomitant]
     Active Substance: ACETAMINOPHEN
     Route: 065
  6. DIPHENHYDRAMINE [Concomitant]
     Active Substance: DIPHENHYDRAMINE
     Route: 065
  7. LIDOCAINE [Concomitant]
     Active Substance: LIDOCAINE
     Route: 065
  8. PRILOCAINE [Concomitant]
     Active Substance: PRILOCAINE
     Route: 065
  9. LORATADINE [Concomitant]
     Active Substance: LORATADINE
     Route: 065
  10. EPINEPHRINE [Concomitant]
     Active Substance: EPINEPHRINE
     Route: 065
  11. PEPCID AC [Concomitant]
     Active Substance: FAMOTIDINE
     Route: 065
  12. OMEPRAZOLE [Concomitant]
     Active Substance: OMEPRAZOLE
     Route: 065
  13. FLUTICASONE PROPIONATE [Concomitant]
     Active Substance: FLUTICASONE PROPIONATE
     Route: 065
  14. PREMARIN [Concomitant]
     Active Substance: ESTROGENS, CONJUGATED
     Route: 065
  15. ZADITOR [KETOTIFEN FUMARATE] [Concomitant]
     Route: 065
  16. SYNTHROID [Concomitant]
     Active Substance: LEVOTHYROXINE SODIUM
     Route: 065
  17. BETAMETHASONE VALERATE [Concomitant]
     Active Substance: BETAMETHASONE VALERATE
     Route: 065
  18. CLOBETASOL [Concomitant]
     Active Substance: CLOBETASOL
     Route: 065
  19. VENTOLIN [Concomitant]
     Active Substance: ALBUTEROL SULFATE
     Route: 065
  20. HYDROXYCHLOROQUINE [Concomitant]
     Active Substance: HYDROXYCHLOROQUINE
     Route: 065
  21. IBUPROFEN [Concomitant]
     Active Substance: IBUPROFEN
     Route: 065
  22. LIOTHYRONINE [Concomitant]
     Active Substance: LIOTHYRONINE
  23. ATENOLOL [Concomitant]
     Active Substance: ATENOLOL
  24. TRIAMCINOLONE [Concomitant]
     Active Substance: TRIAMCINOLONE
  25. TRIAMCINOLONE ACETONIDE [Concomitant]
     Active Substance: TRIAMCINOLONE ACETONIDE
  26. DOXYCYCLINE HYCLATE [Concomitant]
     Active Substance: DOXYCYCLINE HYCLATE
  27. VALSARTAN [Concomitant]
     Active Substance: VALSARTAN
  28. LIDOCAINE\PRILOCAINE [Concomitant]
     Active Substance: LIDOCAINE\PRILOCAINE
  29. VITAMINS [Concomitant]
     Active Substance: VITAMINS
  30. VENTOLIN [Concomitant]
     Active Substance: ALBUTEROL SULFATE
  31. ALBUTEROL [Concomitant]
     Active Substance: ALBUTEROL
  32. LIOTHYRONINE SODIUM [Concomitant]
     Active Substance: LIOTHYRONINE SODIUM

REACTIONS (20)
  - Atrial fibrillation [Unknown]
  - Atrial flutter [Unknown]
  - Bronchitis [Unknown]
  - Sinusitis [Unknown]
  - Wound infection [Unknown]
  - Limb injury [Unknown]
  - Infusion site erythema [Unknown]
  - Headache [Unknown]
  - Fatigue [Unknown]
  - Infusion site swelling [Unknown]
  - Multiple allergies [Not Recovered/Not Resolved]
  - Oral infection [Unknown]
  - Infusion site urticaria [Unknown]
  - Ear infection [Unknown]
  - Oral candidiasis [Unknown]
  - Oral viral infection [Unknown]
  - Intentional product use issue [Unknown]
  - Liquid product physical issue [Unknown]
  - Product dose omission issue [Unknown]
  - Product prescribing error [Unknown]

NARRATIVE: CASE EVENT DATE: 20200103
